FAERS Safety Report 5082609-8 (Version None)
Quarter: 2006Q3

REPORT INFORMATION
  Report Type: 
  Country: None (occurrence: None)
  Receive Date: 20060814
  Receipt Date: 20060804
  Transmission Date: 20061208
  Serious: Yes (Other)
  Sender: FDA-Public Use
  Company Number: 2006092488

PATIENT
  Age: 26 Year
  Sex: Male
  Weight: 74.8435 kg

DRUGS (1)
  1. BENYLIN DM-D-E WITH METHACTIN (PSEUDOEPHEDRINE, DEXTROMETHORPHAN, GUAI [Suspect]
     Indication: COUGH
     Dosage: 100 ML, ORAL
     Route: 048
     Dates: start: 20060730

REACTIONS (3)
  - FEELING ABNORMAL [None]
  - INCORRECT DOSE ADMINISTERED [None]
  - INSOMNIA [None]
